FAERS Safety Report 19673709 (Version 1)
Quarter: 2021Q3

REPORT INFORMATION
  Report Type: Spontaneous
  Country: US (occurrence: US)
  Receive Date: 20210807
  Receipt Date: 20210807
  Transmission Date: 20211014
  Serious: Yes (Other)
  Sender: FDA-Public Use
  Company Number: None

PATIENT
  Age: 69 Year
  Sex: Female
  Weight: 80.1 kg

DRUGS (2)
  1. PREDNISOLONE ACETATE OPHTHALMIC SUSPENSION, USP 1% [Suspect]
     Active Substance: PREDNISOLONE ACETATE
     Indication: CATARACT
     Dosage: ?          QUANTITY:1 DROP(S);?
     Route: 047
     Dates: start: 20210805
  2. NOVOLOG [Concomitant]
     Active Substance: INSULIN ASPART

REACTIONS (1)
  - Blood glucose increased [None]

NARRATIVE: CASE EVENT DATE: 20210807
